FAERS Safety Report 7623079-2 (Version None)
Quarter: 2011Q3

REPORT INFORMATION
  Report Type: 
  Country: None (occurrence: None)
  Receive Date: 20110720
  Receipt Date: 20110714
  Transmission Date: 20111222
  Serious: Yes (Life-Threatening, Hospitalization)
  Sender: FDA-Public Use
  Company Number: US-GILEAD-2011-0041427

PATIENT
  Sex: Female
  Weight: 55.388 kg

DRUGS (12)
  1. COUMADIN [Concomitant]
     Indication: ANTICOAGULANT THERAPY
  2. ASTELIN [Concomitant]
     Indication: HYPERSENSITIVITY
  3. PROZAC [Concomitant]
     Indication: AFFECTIVE DISORDER
  4. NASONEX [Concomitant]
     Indication: HYPERSENSITIVITY
  5. LETAIRIS [Suspect]
     Indication: PULMONARY HYPERTENSION
     Route: 048
     Dates: start: 20110318
  6. POTASSIUM [Concomitant]
     Indication: ELECTROLYTE SUBSTITUTION THERAPY
  7. LISINOPRIL AND HYDROCHLOROTHIAZIDE [Concomitant]
     Indication: BLOOD PRESSURE
  8. LASIX [Concomitant]
     Indication: DIURETIC THERAPY
  9. OMEPRAZOLE [Concomitant]
     Indication: GASTROINTESTINAL INJURY
  10. PREMARIN [Concomitant]
     Indication: HORMONE THERAPY
  11. ALLEGRA [Concomitant]
     Indication: HYPERSENSITIVITY
  12. RITALIN [Concomitant]
     Indication: AFFECTIVE DISORDER

REACTIONS (1)
  - CEREBROVASCULAR ACCIDENT [None]
